FAERS Safety Report 7512980-6 (Version None)
Quarter: 2011Q2

REPORT INFORMATION
  Report Type: 
  Country: None (occurrence: None)
  Receive Date: 20110531
  Receipt Date: 20101213
  Transmission Date: 20111010
  Serious: No
  Sender: FDA-Public Use
  Company Number: US-NOVEN-ALL1-2010-06478

PATIENT
  Sex: Female
  Weight: 50.3 kg

DRUGS (2)
  1. XANAX [Concomitant]
     Dosage: UNK
     Dates: start: 20050101
  2. DAYTRANA [Suspect]
     Indication: ATTENTION DEFICIT/HYPERACTIVITY DISORDER
     Dosage: 20 MG, 1X/DAY: QD
     Route: 062
     Dates: start: 20070101, end: 20070101

REACTIONS (5)
  - APPLICATION SITE PRURITUS [None]
  - APPLICATION SITE HYPERSENSITIVITY [None]
  - APPLICATION SITE ERYTHEMA [None]
  - APPLICATION SITE URTICARIA [None]
  - OFF LABEL USE [None]
